FAERS Safety Report 16117667 (Version 2)
Quarter: 2019Q2

REPORT INFORMATION
  Report Type: Report from Study
  Country: GB (occurrence: GB)
  Receive Date: 20190326
  Receipt Date: 20190521
  Transmission Date: 20190711
  Serious: Yes (Other)
  Sender: FDA-Public Use
  Company Number: PHHY2019GB062973

PATIENT
  Age: 40 Year
  Sex: Female

DRUGS (1)
  1. GILENYA [Suspect]
     Active Substance: FINGOLIMOD HYDROCHLORIDE
     Indication: RELAPSING-REMITTING MULTIPLE SCLEROSIS
     Dosage: 0.5 MG, QD
     Route: 048
     Dates: start: 20190211

REACTIONS (10)
  - Syncope [Unknown]
  - Aphasia [Recovered/Resolved]
  - Headache [Unknown]
  - Dizziness [Unknown]
  - Disturbance in attention [Recovered/Resolved]
  - Chromaturia [Unknown]
  - Bradycardia [Unknown]
  - Blood glucose decreased [Unknown]
  - Malaise [Recovered/Resolved]
  - Cognitive disorder [Recovered/Resolved]

NARRATIVE: CASE EVENT DATE: 201902
